FAERS Safety Report 6162678-4 (Version None)
Quarter: 2009Q2

REPORT INFORMATION
  Report Type: 
  Country: None (occurrence: None)
  Receive Date: 20090421
  Receipt Date: 20090202
  Transmission Date: 20091009
  Serious: No
  Sender: FDA-Public Use
  Company Number: US-ASTRAZENECA-2009UW03047

PATIENT
  Sex: Male

DRUGS (2)
  1. CASODEX [Suspect]
     Route: 048
  2. RADIATION SEEDS [Suspect]

REACTIONS (1)
  - OVERDOSE [None]
